FAERS Safety Report 12763256 (Version 1)
Quarter: 2016Q3

REPORT INFORMATION
  Report Type: Spontaneous
  Country: US (occurrence: US)
  Receive Date: 20160919
  Receipt Date: 20160919
  Transmission Date: 20161109
  Serious: Yes (Other)
  Sender: FDA-Public Use
  Company Number: None

PATIENT
  Age: 68 Year
  Weight: 48.08 kg

DRUGS (10)
  1. VITAMIN D (CHOLECALCIFEROL (VITAMIN D3)) [Concomitant]
  2. RECLAST (ZOLEDRONIC ACID-MANNITOL+WATER) [Concomitant]
  3. PROLIA [Suspect]
     Active Substance: DENOSUMAB
     Indication: OSTEOPOROSIS
     Dates: start: 20160301
  4. CELLCEPT [Concomitant]
     Active Substance: MYCOPHENOLATE MOFETIL\MYCOPHENOLATE MOFETIL HYDROCHLORIDE
  5. ASPIRIN. [Concomitant]
     Active Substance: ASPIRIN
  6. INSULIN ASP PRT-INSULIN ASPART [Concomitant]
  7. PRILOSEC (OMEPRAZOLE) [Concomitant]
     Active Substance: OMEPRAZOLE MAGNESIUM
  8. NOVOLOG [Concomitant]
     Active Substance: INSULIN ASPART
  9. NEORAL (CYCLOSPORINE MODIFIED) [Concomitant]
  10. MAGNESIUM OXIDE. [Concomitant]
     Active Substance: MAGNESIUM OXIDE

REACTIONS (10)
  - Dizziness [None]
  - Gait disturbance [None]
  - Chills [None]
  - Pyrexia [None]
  - Muscular weakness [None]
  - Asthenia [None]
  - Back pain [None]
  - Hair texture abnormal [None]
  - Dry skin [None]
  - Arthralgia [None]

NARRATIVE: CASE EVENT DATE: 20160301
